FAERS Safety Report 23467745 (Version 1)
Quarter: 2024Q1

REPORT INFORMATION
  Report Type: Report from Study
  Country: NL (occurrence: NL)
  Receive Date: 20240201
  Receipt Date: 20240201
  Transmission Date: 20240410
  Serious: Yes (Hospitalization)
  Sender: FDA-Public Use
  Company Number: NL-ABBVIE-5613109

PATIENT
  Age: 79 Year
  Sex: Male

DRUGS (5)
  1. CARBIDOPA\LEVODOPA [Suspect]
     Active Substance: CARBIDOPA\LEVODOPA
     Indication: Parkinson^s disease
     Dosage: MD; 11.5ML; CD: 2.8ML/H; ED: 2.0ML?REMAINS AT 16 HOURS
     Route: 050
     Dates: start: 20230531
  2. CARBIDOPA\LEVODOPA [Suspect]
     Active Substance: CARBIDOPA\LEVODOPA
     Dosage: MD; 11.5ML; CD: 2.8ML/H; ED: 2.0ML?REMAINS AT 16 HOURS
     Route: 050
     Dates: start: 20230110, end: 20230210
  3. CARBIDOPA\LEVODOPA [Suspect]
     Active Substance: CARBIDOPA\LEVODOPA
     Dosage: MD: 11.5ML, REMAINS AT 16 HOURS
     Route: 050
     Dates: start: 20221206, end: 20230110
  4. CARBIDOPA\LEVODOPA [Suspect]
     Active Substance: CARBIDOPA\LEVODOPA
     Dosage: MD; 11.5ML; CD: 2.8ML/H; ED: 2.0ML?REMAINS AT 16 HOURS
     Route: 050
     Dates: start: 20230210, end: 20230531
  5. CARBIDOPA\LEVODOPA [Suspect]
     Active Substance: CARBIDOPA\LEVODOPA
     Dosage: REMAINS AT 16 HOURS
     Route: 050
     Dates: start: 20221101

REACTIONS (1)
  - Fall [Not Recovered/Not Resolved]

NARRATIVE: CASE EVENT DATE: 20240101
